FAERS Safety Report 16761567 (Version 1)
Quarter: 2019Q3

REPORT INFORMATION
  Report Type: Spontaneous
  Country: FR (occurrence: FR)
  Receive Date: 20190830
  Receipt Date: 20190830
  Transmission Date: 20191005
  Serious: Yes (Hospitalization)
  Sender: FDA-Public Use
  Company Number: PHHY2019FR199052

PATIENT
  Age: 77 Year
  Sex: Female
  Weight: 44 kg

DRUGS (1)
  1. VOTRIENT [Suspect]
     Active Substance: PAZOPANIB HYDROCHLORIDE
     Indication: CLEAR CELL RENAL CELL CARCINOMA
     Dosage: 600 MG, QD
     Route: 048
     Dates: start: 20190619, end: 20190723

REACTIONS (5)
  - Diarrhoea [Recovered/Resolved]
  - Jaundice cholestatic [Not Recovered/Not Resolved]
  - Aphthous ulcer [Recovered/Resolved]
  - Hepatocellular injury [Not Recovered/Not Resolved]
  - Hypertension [Recovering/Resolving]

NARRATIVE: CASE EVENT DATE: 201906
